FAERS Safety Report 7764246-7 (Version None)
Quarter: 2011Q3

REPORT INFORMATION
  Report Type: 
  Country: None (occurrence: None)
  Receive Date: 20110921
  Receipt Date: 20110913
  Transmission Date: 20111222
  Serious: Yes (Hospitalization)
  Sender: FDA-Public Use
  Company Number: CN-ASTELLAS-2011US005959

PATIENT
  Sex: Male

DRUGS (1)
  1. TARCEVA [Suspect]
     Indication: LUNG SQUAMOUS CELL CARCINOMA STAGE UNSPECIFIED
     Dosage: UNK
     Route: 048
     Dates: start: 20110818

REACTIONS (6)
  - DECREASED APPETITE [None]
  - PYREXIA [None]
  - RASH GENERALISED [None]
  - HAEMATOCHEZIA [None]
  - HAEMOPTYSIS [None]
  - ABNORMAL FAECES [None]
